FAERS Safety Report 14012873 (Version 2)
Quarter: 2017Q4

REPORT INFORMATION
  Report Type: Spontaneous
  Country: JP (occurrence: JP)
  Receive Date: 20170926
  Receipt Date: 20171013
  Transmission Date: 20180321
  Serious: Yes (Hospitalization)
  Sender: FDA-Public Use
  Company Number: JP-ASTRAZENECA-2017SE96937

PATIENT
  Age: 45 Year
  Sex: Female

DRUGS (4)
  1. GLYCYRON [Concomitant]
     Active Substance: AMMONIUM GLYCYRRHIZATE\GLYCINE\METHIONINE
     Route: 065
  2. FORXIGA [Suspect]
     Active Substance: DAPAGLIFLOZIN
     Indication: TYPE 2 DIABETES MELLITUS
     Dosage: DOSE UNKNOWN
     Route: 048
     Dates: end: 20170919
  3. MINOMYCIN [Suspect]
     Active Substance: MINOCYCLINE HYDROCHLORIDE
     Dosage: DOSE UNKNOWN
     Route: 048
  4. GLACTIV [Concomitant]
     Active Substance: SITAGLIPTIN
     Dosage: DOSE UNKNOWN
     Route: 065

REACTIONS (5)
  - Swelling [Unknown]
  - Pyrexia [Unknown]
  - Hepatic function abnormal [Unknown]
  - Infection [Unknown]
  - Skin exfoliation [Unknown]

NARRATIVE: CASE EVENT DATE: 20170904
